FAERS Safety Report 19089432 (Version 1)
Quarter: 2021Q2

REPORT INFORMATION
  Report Type: Spontaneous
  Country: US (occurrence: US)
  Receive Date: 20210403
  Receipt Date: 20210403
  Transmission Date: 20210717
  Serious: No
  Sender: FDA-Public Use
  Company Number: US-CADILA HEALTHCARE LIMITED-US-ZYDUS-050213

PATIENT
  Age: 53 Year
  Sex: Female

DRUGS (1)
  1. BUSPIRONE HYDROCHLORIDE 15 MILLIGRAM TABLET [Suspect]
     Active Substance: BUSPIRONE HYDROCHLORIDE
     Indication: ANXIETY
     Dosage: 15 MILLIGRAM, QD
     Route: 048
     Dates: start: 202004

REACTIONS (2)
  - Dysgeusia [Not Recovered/Not Resolved]
  - Product taste abnormal [Not Recovered/Not Resolved]

NARRATIVE: CASE EVENT DATE: 202004
